FAERS Safety Report 22072315 (Version 1)
Quarter: 2023Q1

REPORT INFORMATION
  Report Type: Spontaneous
  Country: CN (occurrence: None)
  Receive Date: 20230308
  Receipt Date: 20230308
  Transmission Date: 20230418
  Serious: Yes (Other)
  Sender: FDA-Public Use
  Company Number: CN-ROCHE-3299449

PATIENT
  Sex: Male

DRUGS (16)
  1. MABTHERA [Suspect]
     Active Substance: RITUXIMAB
     Indication: Diffuse large B-cell lymphoma stage I
     Dosage: HE UNDERWENT RCGVP CHEMOTHERAPY FORDIFFUSE LARGE B-CELL LYMPHOMA ON 07/AUG AND WAS DISCHARGED ON 14/
     Route: 065
  2. MABTHERA [Suspect]
     Active Substance: RITUXIMAB
     Indication: Acute lymphocytic leukaemia
     Dosage: ON 09/MAR, HE WAS GIVEN MABTHERA THYPER CYAD + PEGASPARGASE FOR CHEMOTHERAPY FOR ACUTE B-LYMPHOBLAST
     Route: 065
  3. MABTHERA [Suspect]
     Active Substance: RITUXIMAB
     Indication: Precursor B-lymphoblastic lymphoma
     Dosage: ON 11/APR, HE WAS GIVEN MATHERA THYPER CYAD + PEGASPARGASE FOR CHEMOTHERAPY FOR NON-HODGKIN^S B LYMP
     Route: 065
  4. CYCLOPHOSPHAMIDE [Concomitant]
     Active Substance: CYCLOPHOSPHAMIDE
     Indication: Diffuse large B-cell lymphoma stage I
     Dosage: HE UNDERWENT RCGVP CHEMOTHERAPY FOR DIFFUSE LARGE B-CELL LYMPHOMA ON 07/AUG AND WAS DISCHARGED ON 14
  5. GEMCITABINE [Concomitant]
     Active Substance: GEMCITABINE
     Indication: Diffuse large B-cell lymphoma stage I
     Dosage: HE UNDERWENT RCGVP CHEMOTHERAPY FOR DIFFUSE LARGE B-CELL LYMPHOMA ON 07/AUG AND WAS DISCHARGED ON 14
  6. VINCRISTINE [Concomitant]
     Active Substance: VINCRISTINE
     Indication: Diffuse large B-cell lymphoma stage I
     Dosage: HE UNDERWENT RCGVP CHEMOTHERAPY FOR DIFFUSE LARGE B-CELL LYMPHOMA ON 07/AUG AND WAS DISCHARGED ON 14
  7. PREDNISONE [Concomitant]
     Active Substance: PREDNISONE
     Indication: Diffuse large B-cell lymphoma stage I
     Dosage: HE UNDERWENT RCGVP CHEMOTHERAPY FOR DIFFUSE LARGE B-CELL LYMPHOMA ON 07/AUG AND WAS DISCHARGED ON 14
  8. DEXAMETHASONE [Concomitant]
     Active Substance: DEXAMETHASONE
     Indication: Acute lymphocytic leukaemia
     Dosage: ON 31/JAN, HE UNDERWENT LUMBAR PUNCTURE AND INTRATHECAL INJECTION OF DEXAMETHASONE 5 MG + METHOTREXA
     Route: 037
  9. DEXAMETHASONE [Concomitant]
     Active Substance: DEXAMETHASONE
     Dosage: ON 03/FEB, HE WAS GIVEN DFLAG CHEMOTHERAPY
     Route: 065
  10. METHOTREXATE [Concomitant]
     Active Substance: METHOTREXATE
     Indication: Acute lymphocytic leukaemia
     Dosage: ON 31/JAN, HE UNDERWENT LUMBAR PUNCTURE AND INTRATHECAL INJECTION OF DEXAMETHASONE 5 MG + METHOTREXA
     Route: 037
  11. CYTARABINE [Concomitant]
     Active Substance: CYTARABINE
     Indication: Acute lymphocytic leukaemia
     Dosage: ON 31/JAN, HE UNDERWENT LUMBAR PUNCTURE AND INTRATHECAL INJECTION OF DEXAMETHASONE 5 MG + METHOTREXA
     Route: 037
  12. CYTARABINE [Concomitant]
     Active Substance: CYTARABINE
     Dosage: ON 03/FEB, HE WAS GIVEN DFLAG CHEMOTHERAPY
     Route: 065
  13. FLUDARABINE [Concomitant]
     Active Substance: FLUDARABINE PHOSPHATE
     Indication: Acute lymphocytic leukaemia
     Dosage: ON 03/FEB, HE WAS GIVEN DFLAG CHEMOTHERAPY.
  14. GRANULOCYTE COLONY-STIMULATING FACTOR NOS [Concomitant]
     Active Substance: GRANULOCYTE COLONY-STIMULATING FACTOR NOS
     Indication: Acute lymphocytic leukaemia
     Dosage: ON 03/FEB, HE WAS GIVEN DFLAG CHEMOTHERAPY.
  15. PEGASPARGASE [Concomitant]
     Active Substance: PEGASPARGASE
     Indication: Acute lymphocytic leukaemia
     Dosage: ON 09/MAR, HE WAS GIVEN MABTHERA THYPER CYAD + PEGASPARGASE FOR CHEMOTHERAPY.
  16. PEGASPARGASE [Concomitant]
     Active Substance: PEGASPARGASE
     Dosage: ON 11/APR, HE WAS GIVEN MATHERA THYPER CYAD + PEGASPARGASE FOR CHEMOTHERAPY FOR NON-HODGKIN^S B LYMP

REACTIONS (6)
  - Myelosuppression [Unknown]
  - Agranulocytosis [Unknown]
  - Bacterial infection [Recovering/Resolving]
  - Pneumonia [Recovering/Resolving]
  - Drug-induced liver injury [Recovering/Resolving]
  - Deep vein thrombosis [Recovering/Resolving]
